FAERS Safety Report 18178405 (Version 4)
Quarter: 2020Q3

REPORT INFORMATION
  Report Type: Spontaneous
  Country: HU (occurrence: HU)
  Receive Date: 20200820
  Receipt Date: 20200921
  Transmission Date: 20201103
  Serious: Yes (Death, Life-Threatening, Hospitalization)
  Sender: FDA-Public Use
  Company Number: HU-CELGENEUS-HUN-20200804098

PATIENT
  Age: 90 Year
  Sex: Female
  Weight: 54 kg

DRUGS (21)
  1. AZACITIDINE. [Suspect]
     Active Substance: AZACITIDINE
     Dosage: 24.75 MILLIGRAM/SQ. METER
     Route: 058
     Dates: start: 20181217, end: 20200802
  2. CONCOR/BISOPROLOL [Concomitant]
     Indication: ATRIAL FIBRILLATION
     Dosage: 10 MILLIGRAM
     Route: 048
     Dates: start: 20180610, end: 20200811
  3. LAPIDEN [Concomitant]
     Active Substance: INDAPAMIDE
     Indication: HYPERTENSION
     Dosage: 1.5 MILLIGRAM
     Route: 048
     Dates: start: 20190716, end: 20200812
  4. ULPRIX [Concomitant]
     Active Substance: PANTOPRAZOLE SODIUM
     Indication: GASTRITIS EROSIVE
  5. DULSEVIA [Concomitant]
     Active Substance: DULOXETINE HYDROCHLORIDE
     Indication: TREMOR
     Dosage: 30 MILLIGRAM
     Route: 048
     Dates: start: 2010, end: 20200812
  6. VENTER [Concomitant]
     Indication: HYPERCHLORHYDRIA
     Route: 048
     Dates: start: 20200623, end: 20200812
  7. VENETOCLAX. [Concomitant]
     Active Substance: VENETOCLAX
     Indication: ACUTE MYELOID LEUKAEMIA
     Route: 065
  8. ALKALIGEN [Concomitant]
     Indication: PROPHYLAXIS
     Route: 041
     Dates: start: 20180528, end: 20180528
  9. OPRYMEA [Concomitant]
     Active Substance: PRAMIPEXOLE DIHYDROCHLORIDE
     Indication: TREMOR
     Dosage: .18 MILLIGRAM
     Route: 048
     Dates: start: 2010, end: 20200812
  10. MEFORAL [Concomitant]
     Active Substance: METFORMIN HYDROCHLORIDE
     Indication: DIABETES MELLITUS
     Dosage: 1000 MILLIGRAM
     Route: 048
     Dates: start: 20190212, end: 20200811
  11. AZACITIDINE. [Suspect]
     Active Substance: AZACITIDINE
     Indication: ACUTE MYELOID LEUKAEMIA
     Dosage: 75 MILLIGRAM/SQ. METER
     Route: 058
     Dates: start: 20180529, end: 20180916
  12. ALLOPURINOL. [Concomitant]
     Active Substance: ALLOPURINOL
     Indication: PROPHYLAXIS
     Route: 048
     Dates: start: 20180528, end: 20180601
  13. NORMAL SALINE SOLUTION [Concomitant]
     Active Substance: SODIUM CHLORIDE
     Indication: PROPHYLAXIS
     Dosage: 0.9%
     Route: 041
     Dates: start: 20180528, end: 20180601
  14. OLICARD [Concomitant]
     Active Substance: ISOSORBIDE MONONITRATE
     Indication: MYOCARDIAL ISCHAEMIA
     Dosage: 40 MILLIGRAM
     Route: 048
     Dates: start: 20180619, end: 20200811
  15. THIOGAMMA [Concomitant]
     Active Substance: .ALPHA.-LIPOIC ACID
     Indication: DIABETIC NEUROPATHY
     Dosage: 1200 MILLIGRAM
     Route: 048
     Dates: start: 20200623, end: 20200812
  16. AZACITIDINE. [Suspect]
     Active Substance: AZACITIDINE
     Dosage: 37.5 MILLIGRAM/SQ. METER
     Route: 058
     Dates: start: 20181015, end: 20181118
  17. COVERCARD PLUS [Concomitant]
     Active Substance: AMLODIPINE BESYLATE\INDAPAMIDE\PERINDOPRIL ARGININE
     Indication: HYPERTENSION
     Dosage: 5/1.25/5 MG
     Route: 048
     Dates: start: 2011, end: 20200811
  18. RIVOTRIL [Concomitant]
     Active Substance: CLONAZEPAM
     Indication: INSOMNIA
     Dosage: .5 MILLIGRAM
     Route: 048
     Dates: start: 2015, end: 20200812
  19. MILURIT [Concomitant]
     Active Substance: ALLOPURINOL
     Indication: HYPERURICAEMIA
     Dosage: 300 MILLIGRAM
     Route: 048
     Dates: start: 20180602, end: 20200810
  20. ULPRIX [Concomitant]
     Active Substance: PANTOPRAZOLE SODIUM
     Indication: HYPERCHLORHYDRIA
     Dosage: 40 MILLIGRAM
     Route: 048
     Dates: start: 2013, end: 20200812
  21. AMILORID COMP PHARMAVIT [Concomitant]
     Indication: MYOCARDIAL ISCHAEMIA
     Dosage: 5/50 MG
     Route: 048
     Dates: start: 20180619, end: 20200811

REACTIONS (3)
  - Sepsis [Fatal]
  - Subdural haematoma [Recovered/Resolved]
  - Extradural haematoma [Recovered/Resolved]

NARRATIVE: CASE EVENT DATE: 20200803
